FAERS Safety Report 23322119 (Version 2)
Quarter: 2024Q1

REPORT INFORMATION
  Report Type: Report from Study
  Country: US (occurrence: None)
  Receive Date: 20231220
  Receipt Date: 20240209
  Transmission Date: 20240410
  Serious: Yes (Death, Other)
  Sender: FDA-Public Use
  Company Number: 2023A289327

PATIENT
  Age: 20296 Day
  Sex: Female

DRUGS (2)
  1. IMFINZI [Suspect]
     Active Substance: DURVALUMAB
     Indication: Bronchial carcinoma
     Dosage: 500MG/10ML
     Route: 042
     Dates: start: 202310
  2. IMFINZI [Suspect]
     Active Substance: DURVALUMAB
     Indication: Bronchial carcinoma
     Dosage: 120MG/2.4M
     Route: 042
     Dates: start: 202310

REACTIONS (2)
  - Death [Fatal]
  - Underdose [Unknown]

NARRATIVE: CASE EVENT DATE: 20231201
